FAERS Safety Report 6999573-4 (Version None)
Quarter: 2010Q3

REPORT INFORMATION
  Report Type: 
  Country: None (occurrence: None)
  Receive Date: 20100920
  Receipt Date: 20070521
  Transmission Date: 20110219
  Serious: Yes (Other)
  Sender: FDA-Public Use
  Company Number: US-ASTRAZENECA-2006UW26307

PATIENT
  Age: 16053 Day
  Sex: Female
  Weight: 88.5 kg

DRUGS (13)
  1. SEROQUEL [Suspect]
     Indication: BIPOLAR DISORDER
     Route: 048
     Dates: start: 20010101, end: 20040101
  2. SEROQUEL [Suspect]
     Dosage: 400 MG - 600 MG
     Route: 048
     Dates: start: 20010721
  3. ABILIFY [Concomitant]
     Dates: start: 20070921
  4. REMERON [Concomitant]
     Dates: start: 20010721
  5. PROZAC [Concomitant]
     Dosage: 40 MG EVE
     Dates: start: 20010721
  6. TRIAMTERENE AND HYDROCHLOROTHIAZIDE [Concomitant]
     Dosage: 37.5/2 EVE
     Dates: start: 20011030
  7. DIAZEPAM [Concomitant]
     Dosage: 2 MG - 5 MG
     Route: 048
     Dates: start: 20011030
  8. NEXIUM [Concomitant]
     Dates: start: 20030806
  9. TRILEPTAL [Concomitant]
     Dosage: 300 MG - 600 MG
     Dates: start: 20040607
  10. MAXALT [Concomitant]
     Dosage: 10 MG
     Dates: start: 20050615
  11. NAPROSYN [Concomitant]
     Dates: start: 20050701
  12. TRAZODONE HCL [Concomitant]
     Indication: SLEEP DISORDER
     Dates: start: 20070921
  13. LAMICTAL [Concomitant]
     Dates: start: 20070921

REACTIONS (3)
  - DEHYDRATION [None]
  - PANCREATITIS [None]
  - PANCREATITIS ACUTE [None]
